FAERS Safety Report 6839646-X (Version None)
Quarter: 2010Q3

REPORT INFORMATION
  Report Type: 
  Country: None (occurrence: None)
  Receive Date: 20100708
  Receipt Date: 20100618
  Transmission Date: 20110219
  Serious: Yes (Hospitalization, Other)
  Sender: FDA-Public Use
  Company Number: 20100274

PATIENT
  Age: 46 Year
  Sex: Female

DRUGS (1)
  1. VENOFER [Suspect]
     Indication: IRON DEFICIENCY ANAEMIA
     Dosage: 200 MG/30 MINUTES INTRAVENOUS DRIP
     Route: 041
     Dates: start: 20100422, end: 20100422

REACTIONS (9)
  - ABDOMINAL PAIN [None]
  - ARTHRALGIA [None]
  - DECREASED APPETITE [None]
  - DRUG INTOLERANCE [None]
  - DYSPEPSIA [None]
  - FLATULENCE [None]
  - INSOMNIA [None]
  - NAUSEA [None]
  - PAIN IN EXTREMITY [None]
